FAERS Safety Report 25332544 (Version 2)
Quarter: 2025Q2

REPORT INFORMATION
  Report Type: Spontaneous
  Country: CN (occurrence: CN)
  Receive Date: 20250519
  Receipt Date: 20250526
  Transmission Date: 20250716
  Serious: Yes (Other)
  Sender: NOVARTIS
  Company Number: CN-002147023-NVSC2025CN077980

PATIENT
  Age: 83 Year
  Sex: Female
  Weight: 40 kg

DRUGS (1)
  1. CARBAMAZEPINE [Suspect]
     Active Substance: CARBAMAZEPINE
     Indication: Epilepsy
     Dosage: 0.2 G, TID
     Route: 048
     Dates: start: 20250509, end: 20250509

REACTIONS (3)
  - Palpitations [Recovering/Resolving]
  - Chest discomfort [Recovering/Resolving]
  - Rash [Recovering/Resolving]

NARRATIVE: CASE EVENT DATE: 20250509
